FAERS Safety Report 5243897-8 (Version None)
Quarter: 2007Q1

REPORT INFORMATION
  Report Type: 
  Country: None (occurrence: None)
  Receive Date: 20070215
  Receipt Date: 20070201
  Transmission Date: 20070707
  Serious: Yes (Hospitalization)
  Sender: FDA-Public Use
  Company Number: 8016151

PATIENT
  Age: 28 Year
  Sex: Female
  Weight: 79 kg

DRUGS (5)
  1. KEPPRA [Suspect]
     Indication: EPILEPSY
     Dosage: 1500 MG PO
     Route: 048
  2. INSULIN HUMULIN [Concomitant]
  3. HUMULIN N [Concomitant]
  4. FOLIC ACID [Concomitant]
  5. LAXATIVES [Concomitant]

REACTIONS (4)
  - ABORTION THREATENED [None]
  - CAESAREAN SECTION [None]
  - CONVULSION [None]
  - DRUG EXPOSURE BEFORE PREGNANCY [None]
